FAERS Safety Report 7237938-6 (Version None)
Quarter: 2011Q1

REPORT INFORMATION
  Report Type: 
  Country: None (occurrence: None)
  Receive Date: 20110121
  Receipt Date: 20110110
  Transmission Date: 20110831
  Serious: Yes (Death)
  Sender: FDA-Public Use
  Company Number: FR-ELI_LILLY_AND_COMPANY-FR201101002698

PATIENT
  Age: 40 Year
  Sex: Female

DRUGS (2)
  1. HALDOL [Concomitant]
  2. ZYPADHERA [Suspect]
     Dosage: 405 MG, UNK

REACTIONS (1)
  - COMPLETED SUICIDE [None]
